FAERS Safety Report 11829124 (Version 2)
Quarter: 2016Q1

REPORT INFORMATION
  Report Type: Spontaneous
  Country: US (occurrence: US)
  Receive Date: 20151211
  Receipt Date: 20160217
  Transmission Date: 20160525
  Serious: No
  Sender: FDA-Public Use
  Company Number: US-ALLERGAN-1522345US

PATIENT
  Age: 39 Year
  Sex: Female
  Weight: 65.76 kg

DRUGS (2)
  1. KYBELLA [Suspect]
     Active Substance: DEOXYCHOLIC ACID
     Dosage: 4 ML, SINGLE
     Route: 058
     Dates: start: 20150922, end: 20150922
  2. KYBELLA [Suspect]
     Active Substance: DEOXYCHOLIC ACID
     Indication: FAT TISSUE INCREASED
     Dosage: 4 ML, SINGLE
     Route: 058
     Dates: start: 20151020, end: 20151020

REACTIONS (11)
  - Feeling cold [Recovered/Resolved]
  - Oral pain [Recovered/Resolved]
  - Lip swelling [Recovered/Resolved]
  - Hypoaesthesia oral [Recovered/Resolved]
  - Diarrhoea [Recovered/Resolved]
  - Vulvovaginal pruritus [Recovered/Resolved]
  - Mouth swelling [Recovered/Resolved]
  - Mucosal inflammation [Recovered/Resolved]
  - Swollen tongue [Recovered/Resolved]
  - Oral pruritus [Recovered/Resolved]
  - Nausea [Recovered/Resolved]

NARRATIVE: CASE EVENT DATE: 20151021
